FAERS Safety Report 9352150 (Version 3)
Quarter: 2013Q3

REPORT INFORMATION
  Report Type: Spontaneous
  Country: US (occurrence: US)
  Receive Date: 20130617
  Receipt Date: 20130920
  Transmission Date: 20140515
  Serious: Yes (Hospitalization)
  Sender: FDA-Public Use
  Company Number: US-BIOGENIDEC-2013BI052043

PATIENT
  Age: 58 Year
  Sex: Female

DRUGS (10)
  1. AVONEX [Suspect]
     Indication: MULTIPLE SCLEROSIS
     Route: 030
     Dates: start: 201208
  2. AVONEX [Suspect]
     Indication: MULTIPLE SCLEROSIS
     Route: 030
     Dates: start: 20121002
  3. PROZAC [Concomitant]
     Indication: DEPRESSION
     Route: 048
  4. LAMICTAL [Concomitant]
     Indication: BIPOLAR DISORDER
     Route: 048
  5. TRAZODONE [Concomitant]
     Indication: BIPOLAR DISORDER
     Route: 048
  6. MARIJUANA [Concomitant]
  7. SYNTHROID [Concomitant]
  8. LORATADINE [Concomitant]
  9. RANITIDINE [Concomitant]
  10. RITALIN [Concomitant]

REACTIONS (6)
  - Alanine aminotransferase increased [Unknown]
  - Aspartate aminotransferase increased [Unknown]
  - Multiple sclerosis relapse [Recovered/Resolved]
  - Urinary tract infection [Recovered/Resolved]
  - Anxiety [Recovered/Resolved]
  - Asthenia [Recovered/Resolved]
